FAERS Safety Report 25504284 (Version 1)
Quarter: 2025Q2

REPORT INFORMATION
  Report Type: Spontaneous
  Country: US (occurrence: None)
  Receive Date: 20250630
  Receipt Date: 20250630
  Transmission Date: 20250716
  Serious: Yes (Other)
  Sender: FDA-CTU
  Company Number: None

PATIENT
  Age: 21 Year
  Sex: Male
  Weight: 73 kg

DRUGS (3)
  1. ZENATANE [Suspect]
     Active Substance: ISOTRETINOIN
     Indication: Acne
     Dosage: 1 DE DOSAGE FORM DAILY ORAL
     Route: 048
     Dates: start: 20250616, end: 20250620
  2. VITAMIN D [Suspect]
     Active Substance: VITAMIN D NOS
     Dates: start: 20250609, end: 20250620
  3. ACCUTANE [Suspect]
     Active Substance: ISOTRETINOIN

REACTIONS (5)
  - Deafness [None]
  - Therapy cessation [None]
  - Ear pain [None]
  - Tinnitus [None]
  - Vitamin D deficiency [None]

NARRATIVE: CASE EVENT DATE: 20250621
